FAERS Safety Report 7232905-0 (Version None)
Quarter: 2011Q1

REPORT INFORMATION
  Report Type: 
  Country: None (occurrence: None)
  Receive Date: 20110119
  Receipt Date: 20110110
  Transmission Date: 20110831
  Serious: Yes (Other)
  Sender: FDA-Public Use
  Company Number: PHHY2010DE78452

PATIENT
  Sex: Female
  Weight: 63 kg

DRUGS (3)
  1. ACLASTA [Suspect]
     Dosage: UNK
     Route: 042
     Dates: start: 20090203, end: 20090203
  2. ACLASTA [Suspect]
     Indication: OSTEOPOROSIS
     Dosage: UNK
     Route: 042
     Dates: start: 20071119, end: 20071119
  3. ACLASTA [Suspect]
     Dosage: UNK
     Route: 042
     Dates: start: 20100128, end: 20100128

REACTIONS (1)
  - RADIUS FRACTURE [None]
